FAERS Safety Report 6200005-4 (Version None)
Quarter: 2009Q2

REPORT INFORMATION
  Report Type: 
  Country: None (occurrence: None)
  Receive Date: 20090518
  Receipt Date: 20090121
  Transmission Date: 20091009
  Serious: No
  Sender: FDA-Public Use
  Company Number: WAES 0704USA05709

PATIENT
  Age: 81 Year
  Sex: Male

DRUGS (6)
  1. JANUVIA [Suspect]
     Indication: DIABETES MELLITUS
     Dosage: PO 100 MG/DAILY/PO
     Route: 048
     Dates: start: 20070401, end: 20070401
  2. JANUVIA [Suspect]
     Indication: DIABETES MELLITUS
     Dosage: PO 100 MG/DAILY/PO
     Route: 048
     Dates: start: 20070411
  3. ADVIL [Concomitant]
  4. AMARYL [Concomitant]
  5. DIOVAN [Concomitant]
  6. GLIMEPIRIDE [Concomitant]

REACTIONS (5)
  - ABDOMINAL PAIN [None]
  - DIARRHOEA [None]
  - GASTROINTESTINAL MOTILITY DISORDER [None]
  - RHINORRHOEA [None]
  - WRONG TECHNIQUE IN DRUG USAGE PROCESS [None]
